FAERS Safety Report 9262981 (Version 1)
Quarter: 2013Q2

REPORT INFORMATION
  Report Type: Report from Study
  Country: DE (occurrence: DE)
  Receive Date: 20130430
  Receipt Date: 20130430
  Transmission Date: 20140414
  Serious: Yes (Hospitalization)
  Sender: FDA-Public Use
  Company Number: DE-ELI_LILLY_AND_COMPANY-DE201303006968

PATIENT
  Age: 60 Year
  Sex: Female

DRUGS (9)
  1. PLACEBO [Suspect]
     Indication: PANCREATIC CARCINOMA
     Dosage: UNK
     Route: 048
     Dates: start: 20130308, end: 20130318
  2. GEMCITABINE HYDROCHLORIDE [Suspect]
     Indication: PANCREATIC CARCINOMA
     Dosage: 1000 MG/M2, UNK
     Route: 042
     Dates: start: 20130314, end: 20130318
  3. ACETYLSALICYLIC ACID [Concomitant]
     Indication: CEREBROVASCULAR ACCIDENT
     Dosage: UNK
     Dates: start: 201203
  4. METAMIZOL [Concomitant]
     Indication: TUMOUR PAIN
     Dosage: 30 GTT, UNK
     Dates: start: 20130218
  5. METOCLOPRAMID [Concomitant]
     Indication: NAUSEA
     Dosage: UNK
     Dates: start: 20130218
  6. ISOPHANE INSULIN [Concomitant]
     Indication: DIABETES MELLITUS
     Dosage: UNK
  7. KREON [Concomitant]
     Indication: PANCREATIC INSUFFICIENCY
     Dosage: 25000 DF, UNK
     Dates: start: 20130218
  8. PANTOPRAZOLE [Concomitant]
     Indication: PROPHYLAXIS
     Dosage: 40 MG, UNK
     Dates: start: 20130218
  9. VOMEX A                            /00019501/ [Concomitant]
     Indication: NAUSEA
     Dosage: UNK
     Dates: start: 20130314

REACTIONS (1)
  - Gastric stenosis [Recovered/Resolved]
